FAERS Safety Report 7733304-5 (Version None)
Quarter: 2011Q3

REPORT INFORMATION
  Report Type: 
  Country: None (occurrence: None)
  Receive Date: 20110907
  Receipt Date: 20110714
  Transmission Date: 20111222
  Serious: Yes (Other)
  Sender: FDA-Public Use
  Company Number: JP-BAYER-201012116BYL

PATIENT
  Age: 66 Year
  Sex: Male
  Weight: 67 kg

DRUGS (9)
  1. NEXAVAR [Suspect]
     Dosage: 400 MG (DAILY DOSE), , ORAL
     Route: 048
     Dates: start: 20090501, end: 20090513
  2. NEXAVAR [Suspect]
     Dosage: C), , ORAL
     Route: 048
     Dates: start: 20100822
  3. FERROUS CITRATE [Concomitant]
     Indication: ANAEMIA PROPHYLAXIS
     Dosage: 100 MG (DAILY DOSE), , ORAL
     Route: 048
     Dates: start: 20090924, end: 20091022
  4. NEXAVAR [Suspect]
     Dosage: 400 MG (DAILY DOSE), , ORAL
     Route: 048
     Dates: start: 20090814, end: 20091203
  5. NEXAVAR [Suspect]
     Dosage: '400 MG (DAILY DOSE)
     Dates: start: 20090520, end: 20090728
  6. NEXAVAR [Suspect]
     Dosage: 800 MG (DAILY DOSE), , ORAL
     Route: 048
  7. NEXAVAR [Suspect]
     Dosage: '400 MG (DAILY DOSE)
     Dates: start: 20100128
  8. NEXAVAR [Suspect]
     Indication: RENAL CELL CARCINOMA
     Dosage: 800 MG (DAILY DOSE), , ORAL
     Route: 048
     Dates: start: 20090413, end: 20090430
  9. NEXAVAR [Suspect]
     Dosage: '400 MG (DAILY DOSE)
     Dates: start: 20100107, end: 20100109

REACTIONS (9)
  - RASH [None]
  - PALMAR-PLANTAR ERYTHRODYSAESTHESIA SYNDROME [None]
  - DECREASED APPETITE [None]
  - DIARRHOEA [None]
  - HEPATIC FUNCTION ABNORMAL [None]
  - HYPOCALCAEMIA [None]
  - OSTEONECROSIS OF JAW [None]
  - HYPERBILIRUBINAEMIA [None]
  - ALOPECIA [None]
